FAERS Safety Report 9319098 (Version 3)
Quarter: 2013Q2

REPORT INFORMATION
  Report Type: Spontaneous
  Country: JP (occurrence: JP)
  Receive Date: 20130530
  Receipt Date: 20130611
  Transmission Date: 20140414
  Serious: Yes (Hospitalization, Disabling, Other)
  Sender: FDA-Public Use
  Company Number: JP-PFIZER INC-2013161250

PATIENT
  Age: 93 Year
  Sex: Male

DRUGS (7)
  1. TOVIAZ [Suspect]
     Indication: POLLAKIURIA
     Dosage: 4 MG, 1X/DAY
     Route: 048
     Dates: start: 20130421, end: 20130430
  2. TOVIAZ [Suspect]
     Indication: HYPERTONIC BLADDER
  3. URIEF [Concomitant]
     Indication: POLLAKIURIA
     Dosage: 4 MG, 1X/DAY
     Route: 048
     Dates: start: 20130308, end: 20130321
  4. BETANIS [Concomitant]
     Indication: POLLAKIURIA
     Dosage: 50 MG, 1X/DAY
     Route: 048
     Dates: start: 20130308, end: 20130321
  5. FLIVAS [Concomitant]
     Indication: POLLAKIURIA
     Dosage: 25 MG, 1X/DAY
     Route: 048
     Dates: start: 20130321, end: 20130420
  6. FLIVAS [Concomitant]
     Dosage: 25 MG, 1X/DAY
     Route: 048
     Dates: start: 20130430, end: 20130508
  7. STAYBLA [Concomitant]
     Indication: POLLAKIURIA
     Dosage: 0.2 MG, 2X/DAY
     Route: 048
     Dates: start: 20130321, end: 20130418

REACTIONS (2)
  - Renal failure acute [Recovering/Resolving]
  - Urinary retention [Not Recovered/Not Resolved]
